FAERS Safety Report 6661633-5 (Version None)
Quarter: 2010Q1

REPORT INFORMATION
  Report Type: 
  Country: None (occurrence: None)
  Receive Date: 20100331
  Receipt Date: 20090312
  Transmission Date: 20100710
  Serious: Yes (Hospitalization, Other)
  Sender: FDA-Public Use
  Company Number: US-BRISTOL-MYERS SQUIBB COMPANY-14534473

PATIENT
  Age: 73 Year
  Sex: Female

DRUGS (27)
  1. ERBITUX [Suspect]
     Indication: HEAD AND NECK CANCER
     Dosage: STARTED ON 29JAN09.LAST DOSE ON 12MAR09.
     Route: 042
  2. RADIATION THERAPY [Suspect]
     Indication: HEAD AND NECK CANCER
     Dosage: MON-FRI;TO BE DISCONTINUED ON 13MAR09.
     Route: 042
  3. NORVASC [Concomitant]
     Dates: start: 20090115
  4. BIAFINE [Concomitant]
     Indication: RADIATION SKIN INJURY
     Dosage: CREAM
     Route: 061
  5. CLINDAMYCIN [Concomitant]
     Indication: RASH
  6. CLONIDINE [Concomitant]
     Dosage: CLONIDINE PATCH TTS3 THIS STRENGTH SINCE 07FEB09.
     Dates: start: 20090115
  7. ARANESP [Concomitant]
     Dates: start: 20090115
  8. AROMASIN [Concomitant]
     Dates: start: 20090115
  9. NOVOLOG [Concomitant]
     Dosage: NOVOLOG SLIDING SCALE INSULIN
  10. LANTUS [Concomitant]
  11. ISOSORBIDE DINITRATE [Concomitant]
     Dosage: 10MG AC
     Dates: start: 20090304
  12. NITROGLYCERIN [Concomitant]
     Dates: start: 20090304
  13. LABETALOL HCL [Concomitant]
     Dates: start: 20090210
  14. LACTOBACILLUS [Concomitant]
     Dosage: 1 DOSAGE FORM=1 CAPS
     Dates: start: 20090115
  15. LACTULOSE [Concomitant]
     Dates: start: 20090115
  16. REGLAN [Concomitant]
     Dates: start: 20090115
  17. CAPHOSOL [Concomitant]
     Dates: start: 20090217
  18. ZOLOFT [Concomitant]
     Dates: start: 20090115
  19. ZOCOR [Concomitant]
     Dates: start: 20090115
  20. DEMADEX [Concomitant]
     Dosage: DOSE HAS FLUCTUATED SINCE ADMISSION.
  21. LASIX [Concomitant]
     Dosage: DOSE FLUCTUATING SINCE ADMISSION.
  22. WARFARIN SODIUM [Concomitant]
     Dates: start: 20090115
  23. TYLENOL-500 [Concomitant]
  24. DUONEB [Concomitant]
  25. BISACODYL [Concomitant]
  26. LORTAB [Concomitant]
  27. ZOFRAN [Concomitant]

REACTIONS (1)
  - RENAL FAILURE [None]
